FAERS Safety Report 8739412 (Version 6)
Quarter: 2020Q3

REPORT INFORMATION
  Report Type: Report from Study
  Country: FR (occurrence: FR)
  Receive Date: 20120823
  Receipt Date: 20130320
  Transmission Date: 20201104
  Serious: Yes (Hospitalization)
  Sender: FDA-Public Use
  Company Number: FR-JNJFOC-20120807672

PATIENT
  Age: 32 Year
  Sex: Female
  Weight: 65 kg

DRUGS (8)
  1. SOLUPRED (PREDNISOLONE SODIUM SULFOBENZOATE) [Concomitant]
     Active Substance: PREDNISOLONE SODIUM METAZOATE
     Indication: CROHN^S DISEASE
     Route: 048
     Dates: start: 20120715, end: 20120810
  2. TOPALGIC (FRANCE) [Concomitant]
     Active Substance: TRAMADOL HYDROCHLORIDE
     Indication: CROHN^S DISEASE
     Route: 048
     Dates: start: 201201, end: 201207
  3. EFFERALGAN [Concomitant]
     Active Substance: ACETAMINOPHEN
     Indication: CROHN^S DISEASE
     Route: 048
     Dates: start: 201201, end: 201208
  4. USTEKINUMAB [Suspect]
     Active Substance: USTEKINUMAB
     Indication: CROHN^S DISEASE
     Route: 042
     Dates: start: 20120628
  5. TRINORDIOL [Concomitant]
     Active Substance: ETHINYL ESTRADIOL\LEVONORGESTREL
     Indication: CONTRACEPTION
     Route: 048
     Dates: start: 1995
  6. USTEKINUMAB [Suspect]
     Active Substance: USTEKINUMAB
     Route: 042
  7. ENTOCORT [Concomitant]
     Active Substance: BUDESONIDE
     Indication: CROHN^S DISEASE
     Route: 048
     Dates: start: 201205
  8. SECTRAL [Concomitant]
     Active Substance: ACEBUTOLOL HYDROCHLORIDE
     Indication: TACHYCARDIA
     Route: 048
     Dates: start: 2005

REACTIONS (1)
  - Colonic fistula [Recovered/Resolved]

NARRATIVE: CASE EVENT DATE: 20120802
